FAERS Safety Report 8321127-8 (Version None)
Quarter: 2012Q2

REPORT INFORMATION
  Report Type: 
  Country: None (occurrence: None)
  Receive Date: 20120430
  Receipt Date: 20120423
  Transmission Date: 20120825
  Serious: Yes (Other)
  Sender: FDA-Public Use
  Company Number: US-JNJFOC-20120407116

PATIENT
  Age: 23 Year
  Sex: Female
  Weight: 90.72 kg

DRUGS (2)
  1. VISINE-A [Suspect]
     Indication: PRODUCT USED FOR UNKNOWN INDICATION
     Dosage: 1 DROP IN LEFT EYE
     Route: 047
     Dates: start: 20120408, end: 20120408
  2. ALLEGRA [Concomitant]
     Dosage: 1 TABLET
     Route: 065

REACTIONS (2)
  - EYE BURNS [None]
  - EYE IRRITATION [None]
